FAERS Safety Report 23579463 (Version 1)
Quarter: 2024Q1

REPORT INFORMATION
  Report Type: Spontaneous
  Country: FR (occurrence: FR)
  Receive Date: 20240229
  Receipt Date: 20240229
  Transmission Date: 20240410
  Serious: Yes (Other)
  Sender: FDA-Public Use
  Company Number: FR-SUN PHARMACEUTICAL INDUSTRIES LTD-2024RR-433273

PATIENT
  Age: 18 Year
  Sex: Female

DRUGS (1)
  1. PREGABALIN [Suspect]
     Active Substance: PREGABALIN
     Indication: Product used for unknown indication
     Dosage: UNK
     Route: 065
     Dates: start: 20231023, end: 20231024

REACTIONS (2)
  - Victim of chemical submission [Recovered/Resolved]
  - Victim of sexual abuse [Recovered/Resolved]

NARRATIVE: CASE EVENT DATE: 20231023
